FAERS Safety Report 14700344 (Version 1)
Quarter: 2018Q1

REPORT INFORMATION
  Report Type: Spontaneous
  Country: US (occurrence: US)
  Receive Date: 20180330
  Receipt Date: 20180330
  Transmission Date: 20180509
  Serious: No
  Sender: FDA-Public Use
  Company Number: None

PATIENT
  Age: 72 Year
  Sex: Female

DRUGS (2)
  1. REMICADE [Suspect]
     Active Substance: INFLIXIMAB
     Indication: CROHN^S DISEASE
     Dates: start: 20180206
  2. REMICADE [Suspect]
     Active Substance: INFLIXIMAB
     Indication: CROHN^S DISEASE
     Dates: start: 20180308

REACTIONS (8)
  - Hypersensitivity [None]
  - Heart rate increased [None]
  - Gait inability [None]
  - Erythema [None]
  - Joint swelling [None]
  - Feeling hot [None]
  - Arthralgia [None]
  - Infusion related reaction [None]

NARRATIVE: CASE EVENT DATE: 20180308
